FAERS Safety Report 6077716-7 (Version None)
Quarter: 2009Q1

REPORT INFORMATION
  Report Type: 
  Country: None (occurrence: None)
  Receive Date: 20090213
  Receipt Date: 20090210
  Transmission Date: 20090719
  Serious: Yes (Death, Hospitalization)
  Sender: FDA-Public Use
  Company Number: ES-ELI_LILLY_AND_COMPANY-ES200902002679

PATIENT
  Age: 67 Year
  Sex: Male

DRUGS (2)
  1. ALIMTA [Suspect]
     Indication: MESOTHELIOMA
     Dosage: 100 MG, UNKNOWN
     Route: 042
     Dates: start: 20081021, end: 20081024
  2. CARBOPLATIN [Interacting]
     Indication: MESOTHELIOMA
     Dosage: UNK, UNKNOWN
     Route: 042
     Dates: start: 20081024, end: 20081024

REACTIONS (4)
  - DRUG INTERACTION [None]
  - MUCOSAL INFLAMMATION [None]
  - PANCYTOPENIA [None]
  - RESPIRATORY FAILURE [None]
